FAERS Safety Report 9795642 (Version 3)
Quarter: 2014Q2

REPORT INFORMATION
  Report Type: Spontaneous
  Country: US (occurrence: US)
  Receive Date: 20140103
  Receipt Date: 20140530
  Transmission Date: 20141212
  Serious: No
  Sender: FDA-Public Use
  Company Number: US-PFIZER INC-2013374148

PATIENT
  Age: 72 Year
  Sex: Female
  Weight: 54 kg

DRUGS (4)
  1. PREMARIN [Suspect]
     Indication: HORMONE REPLACEMENT THERAPY
     Dosage: 0.45 MG, 1X/DAY
     Route: 048
     Dates: start: 1980, end: 201311
  2. PREMARIN [Suspect]
     Dosage: 0.45 MG, 1X/DAY
     Route: 048
     Dates: end: 201401
  3. LEVOTHYROXINE [Concomitant]
     Indication: THYROID DISORDER
     Dosage: 75 UG, UNK
  4. LISINOPRIL W/HYDROCHLOROTHIAZIDE [Concomitant]
     Indication: HYPERTENSION
     Dosage: 20/12.5 MG

REACTIONS (10)
  - Hot flush [Unknown]
  - Night sweats [Unknown]
  - Fatigue [Unknown]
  - Headache [Unknown]
  - Vulvovaginal dryness [Unknown]
  - Malaise [Not Recovered/Not Resolved]
  - Mood swings [Not Recovered/Not Resolved]
  - Dry skin [Not Recovered/Not Resolved]
  - Nervousness [Not Recovered/Not Resolved]
  - Poor quality sleep [Not Recovered/Not Resolved]
